FAERS Safety Report 8272756 (Version 3)
Quarter: 2013Q2

REPORT INFORMATION
  Report Type: Report from Study
  Country: FR (occurrence: FR)
  Receive Date: 20111202
  Receipt Date: 20130624
  Transmission Date: 20140414
  Serious: Yes (Hospitalization)
  Sender: FDA-Public Use
  Company Number: FR-GLAXOSMITHKLINE-B0752153B

PATIENT
  Age: 61 Year
  Sex: Male
  Weight: 68 kg

DRUGS (6)
  1. PAZOPANIB [Suspect]
     Indication: NEOPLASM MALIGNANT
     Dosage: 800MG PER DAY
     Route: 048
     Dates: start: 20110824, end: 20111116
  2. CLAMOXYL [Concomitant]
     Indication: OROPHARYNGEAL PAIN
     Dosage: 2G PER DAY
     Route: 048
     Dates: start: 20111006, end: 20111012
  3. PRIMPERAN [Concomitant]
     Indication: NAUSEA
     Dosage: 30MG AS REQUIRED
     Route: 048
     Dates: start: 20111019
  4. LEVOTHYROX [Concomitant]
     Indication: HYPOTHYROIDISM
     Dosage: 100MCG PER DAY
     Route: 048
     Dates: start: 20110930
  5. LOXEN [Concomitant]
     Indication: HYPERTENSION
     Dosage: 50MG PER DAY
     Route: 048
     Dates: start: 20110812
  6. BISOPROLOL [Concomitant]
     Indication: HYPERTENSION
     Dates: start: 20111019

REACTIONS (2)
  - Thrombotic microangiopathy [Recovered/Resolved]
  - Nephrotic syndrome [Recovered/Resolved]
